FAERS Safety Report 5979964-0 (Version None)
Quarter: 2008Q4

REPORT INFORMATION
  Report Type: 
  Country: None (occurrence: None)
  Receive Date: 20081205
  Receipt Date: 20081204
  Transmission Date: 20090506
  Serious: Yes (Death, Life-Threatening)
  Sender: FDA-Public Use
  Company Number: JP-JNJFOC-20080405751

PATIENT
  Sex: Male
  Weight: 37 kg

DRUGS (43)
  1. ITRACONAZOLE [Suspect]
     Route: 048
  2. ITRACONAZOLE [Suspect]
     Indication: BRONCHOPULMONARY ASPERGILLOSIS
     Route: 048
  3. GLOVENIN 1 [Concomitant]
     Indication: ATYPICAL MYCOBACTERIAL INFECTION
     Route: 041
  4. MUCOSTA [Concomitant]
     Indication: GASTRITIS PROPHYLAXIS
     Route: 048
  5. CLARITHROMYCIN [Concomitant]
     Route: 048
  6. CLARITHROMYCIN [Concomitant]
     Indication: ATYPICAL MYCOBACTERIAL INFECTION
     Route: 048
  7. ITRIZOLE [Concomitant]
     Route: 041
  8. ITRIZOLE [Concomitant]
     Indication: BRONCHOPULMONARY ASPERGILLOSIS
     Route: 041
  9. AMINOTRIPA NO 2 [Concomitant]
     Indication: NUTRITIONAL SUPPORT
     Route: 041
  10. BFLUID [Concomitant]
     Indication: ATYPICAL MYCOBACTERIAL INFECTION
     Route: 041
  11. BFLUID [Concomitant]
     Indication: NUTRITIONAL SUPPORT
     Route: 041
  12. DAIMEDIN_MULTI [Concomitant]
     Indication: ATYPICAL MYCOBACTERIAL INFECTION
     Route: 041
  13. DAIMEDIN_MULTI [Concomitant]
     Indication: NUTRITIONAL SUPPORT
     Route: 041
  14. MINERALIN [Concomitant]
     Indication: NUTRITIONAL SUPPORT
     Route: 041
  15. ZANTAC [Concomitant]
     Indication: GASTRITIS PROPHYLAXIS
     Route: 041
  16. NEOMINOPHAGEN C [Concomitant]
     Indication: ATYPICAL MYCOBACTERIAL INFECTION
     Route: 042
  17. SOLDEM 3A [Concomitant]
     Indication: MEDICATION DILUTION
     Route: 041
  18. NEOPHYLLINE [Concomitant]
     Indication: BRONCHOSTENOSIS
     Route: 041
  19. PREDONINE [Concomitant]
     Indication: BRONCHOSTENOSIS
     Dosage: 7.5-35 MG PER DAY
     Route: 041
  20. CIPROXAN [Concomitant]
     Indication: ANTIBIOTIC PROPHYLAXIS
     Route: 041
  21. ISOTONIC SODIUM CHLORIDE SOLUTION [Concomitant]
     Indication: MEDICATION DILUTION
     Dosage: 200-600MG PER DAY
     Route: 041
  22. CRAVIT [Concomitant]
     Route: 048
  23. CRAVIT [Concomitant]
     Indication: ATYPICAL MYCOBACTERIAL INFECTION
     Route: 048
  24. MUCOSTA [Concomitant]
     Route: 048
  25. FAROM [Concomitant]
     Route: 048
  26. FAROM [Concomitant]
     Indication: ATYPICAL MYCOBACTERIAL INFECTION
     Route: 048
  27. ENSURE LIQUID [Concomitant]
     Indication: PARENTERAL NUTRITION
     Route: 048
  28. ENSURE LIQUID [Concomitant]
     Indication: BRONCHOPULMONARY ASPERGILLOSIS
     Route: 048
  29. LENDORM [Concomitant]
     Route: 048
  30. LENDORM [Concomitant]
     Indication: INSOMNIA
     Route: 048
  31. VONFENAC [Concomitant]
     Indication: PNEUMOCONIOSIS
     Route: 054
  32. INTENURSE [Concomitant]
     Route: 061
  33. PAZUFLOXACIN MESILATE [Concomitant]
     Indication: ATYPICAL MYCOBACTERIAL INFECTION
     Route: 041
  34. ESTOTIN [Concomitant]
     Route: 041
  35. ESTOTIN [Concomitant]
     Route: 041
  36. AMINOTRIPA NO.1 [Concomitant]
     Indication: ATYPICAL MYCOBACTERIAL INFECTION
     Route: 041
  37. AMINOTRIPA NO.1 [Concomitant]
     Indication: NUTRITIONAL SUPPORT
     Route: 041
  38. SOL MELCORT [Concomitant]
     Indication: ATYPICAL MYCOBACTERIAL INFECTION
     Dosage: 250-500MG PER DAY
     Route: 041
  39. MINERALIN [Concomitant]
     Indication: ATYPICAL MYCOBACTERIAL INFECTION
     Dosage: 250-500MG PER DAY
     Route: 041
  40. KAKODIN-D [Concomitant]
     Indication: ATYPICAL MYCOBACTERIAL INFECTION
     Dosage: 250-500MG PER DAY
     Route: 041
  41. ATARAX [Concomitant]
     Dosage: 250-500MG PER DAY
     Route: 041
  42. ATARAX [Concomitant]
     Indication: INSOMNIA
     Dosage: 250-500MG PER DAY
     Route: 041
  43. BELLAMITOL [Concomitant]
     Indication: INSOMNIA
     Dosage: 250-500MG PER DAY
     Route: 055

REACTIONS (1)
  - PNEUMONIA ASPIRATION [None]
